FAERS Safety Report 9626927 (Version 3)
Quarter: 2013Q4

REPORT INFORMATION
  Report Type: Report from Study
  Country: US (occurrence: US)
  Receive Date: 20131016
  Receipt Date: 20131205
  Transmission Date: 20140711
  Serious: Yes (Other)
  Sender: FDA-Public Use
  Company Number: US-JNJFOC-20131004310

PATIENT
  Age: 76 Year
  Sex: Female
  Weight: 52.16 kg

DRUGS (9)
  1. XARELTO [Suspect]
     Indication: CEREBROVASCULAR ACCIDENT PROPHYLAXIS
     Route: 048
     Dates: start: 201307
  2. XARELTO [Suspect]
     Indication: ATRIAL FIBRILLATION
     Route: 048
     Dates: start: 201307
  3. BABY ASPIRIN [Suspect]
     Indication: PRODUCT USED FOR UNKNOWN INDICATION
     Dosage: STRENGTH: 81 MG, SEVERAL YEARS, PRESCRIBED BY DOCTOR
     Route: 048
  4. METOPROLOL SUCCINATE [Concomitant]
     Indication: BLOOD PRESSURE ABNORMAL
     Dosage: SVERAL YEARS
     Route: 048
  5. MULTIVITAMINS [Concomitant]
     Dosage: SEVERAL YEARS
     Route: 048
  6. VITAMIN B12 [Concomitant]
     Indication: PROPHYLAXIS
     Dosage: SEVERAL YEARS
     Route: 065
  7. VITAMIN D3 [Concomitant]
     Indication: PROPHYLAXIS
     Dosage: SEVERAL YEARS
     Route: 048
  8. CALCIUM CITRATE + VITAMIN D [Concomitant]
     Indication: PROPHYLAXIS
     Route: 048
  9. MULTIVITAMIN/MINERALS [Concomitant]
     Dosage: SEVERAL YEARS
     Route: 065

REACTIONS (9)
  - Fall [Recovered/Resolved]
  - Contusion [Not Recovered/Not Resolved]
  - Haematoma [Recovered/Resolved]
  - Haemorrhage [Recovered/Resolved]
  - Haemarthrosis [Unknown]
  - Haemorrhage [Unknown]
  - Discomfort [Unknown]
  - Mouth haemorrhage [Unknown]
  - Arthralgia [Recovered/Resolved]
